FAERS Safety Report 8246212-0 (Version None)
Quarter: 2012Q1

REPORT INFORMATION
  Report Type: 
  Country: None (occurrence: None)
  Receive Date: 20120328
  Receipt Date: 20120328
  Transmission Date: 20120608
  Serious: No
  Sender: FDA-Public Use
  Company Number: None

PATIENT
  Sex: Female
  Weight: 58.9676 kg

DRUGS (1)
  1. SPIRIVA [Suspect]
     Indication: DRUG HYPERSENSITIVITY
     Dosage: 1 CAPSULE INHALER EVERY DAY MOUTH
     Route: 048

REACTIONS (3)
  - SWOLLEN TONGUE [None]
  - TONGUE BLISTERING [None]
  - PHARYNGEAL DISORDER [None]
